FAERS Safety Report 9765072 (Version 2)
Quarter: 2013Q4

REPORT INFORMATION
  Report Type: Spontaneous
  Country: JP (occurrence: JP)
  Receive Date: 20131217
  Receipt Date: 20131226
  Transmission Date: 20140711
  Serious: Yes (Hospitalization)
  Sender: FDA-Public Use
  Company Number: JP-ELI_LILLY_AND_COMPANY-JP201312002079

PATIENT
  Age: 79 Year
  Sex: Female
  Weight: 24 kg

DRUGS (7)
  1. FORTEO [Suspect]
     Indication: OSTEOPOROSIS
     Dosage: 20 UG, QD
     Route: 058
     Dates: start: 201308, end: 201312
  2. HALRACK [Concomitant]
     Dosage: 0.125 MG, UNK
     Route: 048
  3. EVAMYL [Concomitant]
     Dosage: 1 MG, UNK
     Route: 048
  4. TRAZODONE HYDROCHLORIDE [Concomitant]
     Dosage: 25 MG, UNK
     Route: 048
  5. METHYCOBAL [Concomitant]
     Dosage: 1500 UG, UNK
     Route: 048
  6. MILNACIPRAN [Concomitant]
     Dosage: 75 MG, UNK
     Route: 048
  7. MAGMITT [Concomitant]
     Dosage: 990 MG, UNK
     Route: 048

REACTIONS (3)
  - Hepatic enzyme increased [Recovered/Resolved]
  - Fall [Recovered/Resolved]
  - Femur fracture [Unknown]
